FAERS Safety Report 4755076-9 (Version None)
Quarter: 2005Q3

REPORT INFORMATION
  Report Type: 
  Country: None (occurrence: None)
  Receive Date: 20050829
  Receipt Date: 20050825
  Transmission Date: 20060218
  Serious: Yes (Hospitalization)
  Sender: FDA-Public Use
  Company Number: PHNU2005DE02969

PATIENT
  Age: 18 Year
  Sex: Female

DRUGS (1)
  1. TRILEPTAL [Suspect]
     Indication: SIMPLE PARTIAL SEIZURES
     Dosage: 600 MG, BID
     Dates: start: 20000101

REACTIONS (4)
  - BLOOD AMINO ACID LEVEL INCREASED [None]
  - DEMYELINATION [None]
  - PARAESTHESIA [None]
  - PARESIS [None]
